FAERS Safety Report 25878763 (Version 2)
Quarter: 2025Q4

REPORT INFORMATION
  Report Type: Report from Study
  Country: TR (occurrence: TR)
  Receive Date: 20251003
  Receipt Date: 20251124
  Transmission Date: 20260118
  Serious: Yes (Hospitalization)
  Sender: ELI LILLY AND COMPANY
  Company Number: TR-ELI_LILLY_AND_COMPANY-TR202509017174

PATIENT
  Age: 74 Year
  Sex: Male

DRUGS (1)
  1. HUMULIN NOS [Suspect]
     Active Substance: INSULIN HUMAN
     Indication: Product used for unknown indication
     Dosage: 20 U, BID
     Route: 065

REACTIONS (9)
  - Osteonecrosis [Unknown]
  - Osteonecrosis [Recovered/Resolved]
  - Localised infection [Unknown]
  - Vein disorder [Unknown]
  - Wound [Unknown]
  - Impaired healing [Unknown]
  - Gait disturbance [Unknown]
  - Skin discolouration [Unknown]
  - Blood glucose decreased [Unknown]

NARRATIVE: CASE EVENT DATE: 20130101
